FAERS Safety Report 8956566 (Version 1)
Quarter: 2012Q4

REPORT INFORMATION
  Report Type: 
  Country: IT (occurrence: IT)
  Receive Date: 20121210
  Receipt Date: 20121210
  Transmission Date: 20130627
  Serious: Yes (Hospitalization)
  Sender: FDA-Public Use
  Company Number: IT-PFIZER INC-2012301371

PATIENT
  Age: 76 Year
  Sex: Female

DRUGS (6)
  1. CISPLATINO TEVA [Suspect]
     Indication: CERVIX CARCINOMA STAGE IV
     Dosage: 83 mg, cyclic
     Route: 041
     Dates: start: 20120316, end: 20120706
  2. PACLITAXEL [Concomitant]
     Indication: CERVIX CARCINOMA STAGE IV
     Dosage: 224 mg, UNK
     Route: 041
     Dates: start: 20120316, end: 20120706
  3. SOLU-CORTEF [Concomitant]
     Indication: ANAPHYLAXIS PROPHYLAXIS
     Dosage: 250 mg, UNK
     Route: 041
     Dates: start: 20120316, end: 20120706
  4. TRIMETON [Concomitant]
     Indication: ANAPHYLAXIS PROPHYLAXIS
     Dosage: 10 mg (10 mg/ml), UNK
     Route: 041
     Dates: start: 20120316, end: 20120706
  5. RANIDIL [Concomitant]
     Indication: PROPHYLAXIS AGAINST DRUG-INDUCED PEPTIC ULCERS
     Dosage: 100 mg (50mg/5ml), UNK
     Route: 041
     Dates: start: 20120316, end: 20120706
  6. PLASIL [Concomitant]
     Indication: CHEMOTHERAPY INDUCED EMESIS PROPHYLAXIS
     Dosage: 10 mg (10mg/2ml), UNK
     Route: 041
     Dates: start: 20120316, end: 20120706

REACTIONS (2)
  - Flushing [Recovered/Resolved]
  - Vomiting [Recovered/Resolved]
